FAERS Safety Report 20106370 (Version 1)
Quarter: 2021Q4

REPORT INFORMATION
  Report Type: Spontaneous
  Country: GB (occurrence: None)
  Receive Date: 20211124
  Receipt Date: 20211124
  Transmission Date: 20220303
  Serious: Yes (Other)
  Sender: FDA-Public Use
  Company Number: GB-ROCHE-2958887

PATIENT
  Age: 91 Year
  Sex: Female

DRUGS (1)
  1. OBINUTUZUMAB [Suspect]
     Active Substance: OBINUTUZUMAB
     Indication: Product used for unknown indication
     Route: 042
     Dates: start: 202003

REACTIONS (1)
  - Periorbital cellulitis [Unknown]

NARRATIVE: CASE EVENT DATE: 20211101
